FAERS Safety Report 8103331-7 (Version None)
Quarter: 2011Q4

REPORT INFORMATION
  Report Type: 
  Country: None (occurrence: None)
  Receive Date: 20111222
  Receipt Date: 20110914
  Transmission Date: 20120403
  Serious: Yes (Death, Hospitalization)
  Sender: FDA-Public Use
  Company Number: UTC-010235

PATIENT
  Age: 35 Year
  Sex: Female
  Weight: 65.9 kg

DRUGS (2)
  1. DIURETICS (DIURETICS) [Concomitant]
  2. TYVASO [Suspect]
     Indication: COR PULMONALE CHRONIC
     Dosage: 216 MCG (54 MCG,4 IN 1 D),INHALATION
     Route: 055
     Dates: start: 20110323

REACTIONS (3)
  - CARDIAC FAILURE [None]
  - TREATMENT NONCOMPLIANCE [None]
  - HEART DISEASE CONGENITAL [None]
